FAERS Safety Report 19461462 (Version 1)
Quarter: 2021Q2

REPORT INFORMATION
  Report Type: Spontaneous
  Country: US (occurrence: US)
  Receive Date: 20210625
  Receipt Date: 20210625
  Transmission Date: 20210717
  Serious: Yes (Life-Threatening, Hospitalization)
  Sender: FDA-Public Use
  Company Number: US-AMNEAL PHARMACEUTICALS-2021-AMRX-02460

PATIENT
  Age: 16 Year
  Sex: Female
  Weight: 44.4 kg

DRUGS (1)
  1. AMLODIPINE BESYLATE. [Suspect]
     Active Substance: AMLODIPINE BESYLATE
     Indication: HYPERTENSION
     Dosage: UNK
     Route: 048

REACTIONS (4)
  - Pulseless electrical activity [Recovered/Resolved]
  - Intentional overdose [Unknown]
  - Acute kidney injury [Recovered/Resolved]
  - Shock [Recovered/Resolved]
